FAERS Safety Report 24552790 (Version 1)
Quarter: 2024Q4

REPORT INFORMATION
  Report Type: Spontaneous
  Country: RO (occurrence: RO)
  Receive Date: 20241027
  Receipt Date: 20241027
  Transmission Date: 20250114
  Serious: Yes (Hospitalization, Other)
  Sender: ALEXION PHARMACEUTICALS
  Company Number: RO-AstraZeneca-CH-00730119A

PATIENT
  Age: 33 Year

DRUGS (1)
  1. FASENRA [Suspect]
     Active Substance: BENRALIZUMAB
     Indication: Asthma
     Dosage: 1 UNK, Q8W

REACTIONS (1)
  - Erythema multiforme [Unknown]
